FAERS Safety Report 8237722-0 (Version None)
Quarter: 2012Q1

REPORT INFORMATION
  Report Type: 
  Country: None (occurrence: None)
  Receive Date: 20120327
  Receipt Date: 20120319
  Transmission Date: 20120608
  Serious: Yes (Other)
  Sender: FDA-Public Use
  Company Number: GR-SANOFI-AVENTIS-2012SA018575

PATIENT
  Age: 77 Year
  Sex: Male

DRUGS (4)
  1. ISOPTIN [Concomitant]
     Indication: ATRIAL FIBRILLATION
  2. LASIX [Suspect]
     Indication: RESPIRATORY FAILURE
     Dosage: START DATE: YEARS
     Route: 065
     Dates: end: 20120319
  3. SINTROM [Concomitant]
     Indication: ATRIAL FIBRILLATION
  4. ALFUZOSIN HCL [Suspect]
     Dosage: START DATE: YEARSSTOP DATE: 5 DAYS
     Route: 065

REACTIONS (1)
  - PEMPHIGOID [None]
